FAERS Safety Report 8006731-9 (Version None)
Quarter: 2011Q4

REPORT INFORMATION
  Report Type: 
  Country: None (occurrence: None)
  Receive Date: 20111227
  Receipt Date: 20111216
  Transmission Date: 20120403
  Serious: Yes (Other)
  Sender: FDA-Public Use
  Company Number: US-BAYER-2011-090647

PATIENT
  Age: 18 Year
  Sex: Female
  Weight: 47.619 kg

DRUGS (15)
  1. TIZANIDINE HYDROCHLORIDE [Concomitant]
     Dosage: UNK
     Dates: start: 20090814
  2. YAZ [Suspect]
  3. PREDNISONE TAB [Concomitant]
     Dosage: UNK
     Dates: start: 20090423
  4. CEPHALEXIN [Concomitant]
     Dosage: UNK
     Dates: start: 20090807
  5. YAZ [Suspect]
     Indication: PREMENSTRUAL SYNDROME
     Dosage: UNK
     Dates: end: 20100401
  6. SULFAMETHOXAZOLE AND TRIMETHOPRIM [Concomitant]
     Dosage: UNK
     Dates: start: 20090316
  7. BUTALBITAL COMPOUND [Concomitant]
     Dosage: UNK
     Dates: start: 20090331
  8. MELOXICAM [Concomitant]
     Dosage: UNK
     Dates: start: 20090410
  9. TRAMADOL HCL [Concomitant]
     Dosage: UNK
     Dates: start: 20090526
  10. YAZ [Suspect]
     Indication: ACNE
     Dosage: UNK
     Dates: start: 20070101
  11. HYDROCODONE BITARTRATE AND ACETAMINOPHEN [Concomitant]
     Dosage: UNK
     Dates: start: 20090807
  12. LEXAPRO [Concomitant]
     Dosage: 10 MG, QD
     Dates: start: 20091217, end: 20091217
  13. ZITHROMAX [Concomitant]
     Dosage: UNK
     Dates: start: 20091215
  14. CLINDESSE [Concomitant]
     Route: 067
  15. SKELAXIN [Concomitant]
     Dosage: UNK
     Dates: start: 20090526

REACTIONS (13)
  - CHOLELITHIASIS [None]
  - BOWEL MOVEMENT IRREGULARITY [None]
  - NAUSEA [None]
  - MIGRAINE [None]
  - DECREASED APPETITE [None]
  - CHOLECYSTITIS CHRONIC [None]
  - ABDOMINAL TENDERNESS [None]
  - INJURY [None]
  - HYPERSENSITIVITY [None]
  - VOMITING [None]
  - FOOD INTOLERANCE [None]
  - ABDOMINAL PAIN [None]
  - PROCEDURAL NAUSEA [None]
